FAERS Safety Report 5281997-7 (Version None)
Quarter: 2007Q1

REPORT INFORMATION
  Report Type: 
  Country: None (occurrence: None)
  Receive Date: 20061218
  Receipt Date: 20060203
  Transmission Date: 20070707
  Serious: Yes (Other)
  Sender: FDA-Public Use
  Company Number: US_000846623

PATIENT
  Age: 21 Year
  Sex: Female
  Weight: 49.5 kg

DRUGS (8)
  1. HUMULIN 50/50 [Suspect]
     Indication: DIABETES MELLITUS
     Dosage: 26 U, DAILY (1/D), SUBCUTANEOUS
     Route: 058
     Dates: start: 20000601
  2. HUMULIN R [Suspect]
     Indication: DIABETES MELLITUS
     Dosage: 6 U, AS NEEDED, SUBCUTANEOUS
     Route: 058
     Dates: start: 20000601
  3. ILETIN [Suspect]
     Indication: DIABETES MELLITUS
     Dosage: 28 U, DAILY (1/D), SUBCUTANEOUS
     Route: 058
     Dates: end: 20000601
  4. ILETIN [Suspect]
     Indication: DIABETES MELLITUS
     Dosage: 4 U, AS NEEDED, SUBCUTANEOUS
     Route: 058
     Dates: end: 20000601
  5. ILETIN [Suspect]
     Indication: DIABETES MELLITUS
     Dosage: SUBCUTANEOUS
     Route: 058
  6. INSULIN, ANIMAL(INSULIN, ANIMAL UNKNOWN FORMULATION) [Suspect]
     Indication: DIABETES MELLITUS
     Dosage: SUBCUTANEOUS
     Route: 058
  7. INSULIN, ANIMAL(INSULIN, ANIMAL UNKNOWN FORMULATION) UNKNOWN [Suspect]
     Indication: DIABETES MELLITUS
  8. MULTI-VITAMIN [Concomitant]

REACTIONS (8)
  - BLOOD GLUCOSE DECREASED [None]
  - BLOOD GLUCOSE INCREASED [None]
  - DIABETIC COMA [None]
  - DIZZINESS [None]
  - DRUG EXPOSURE DURING PREGNANCY [None]
  - FEELING ABNORMAL [None]
  - POLLAKIURIA [None]
  - SHOCK HYPOGLYCAEMIC [None]
